FAERS Safety Report 9445721 (Version 1)
Quarter: 2013Q3

REPORT INFORMATION
  Report Type: Spontaneous
  Country: CO (occurrence: CO)
  Receive Date: 20130807
  Receipt Date: 20130807
  Transmission Date: 20140515
  Serious: Yes (Hospitalization, Other)
  Sender: FDA-Public Use
  Company Number: CO-BAXTER-2013BAX030582

PATIENT
  Age: 38 Month
  Sex: 0

DRUGS (1)
  1. FEIBA [Suspect]
     Indication: HAEMOPHILIA A WITH ANTI FACTOR VIII
     Route: 042
     Dates: start: 201304, end: 201307

REACTIONS (2)
  - Haemarthrosis [Recovering/Resolving]
  - Drug ineffective [Recovering/Resolving]
